FAERS Safety Report 5341379-6 (Version None)
Quarter: 2007Q2

REPORT INFORMATION
  Report Type: 
  Country: None (occurrence: None)
  Receive Date: 20070530
  Receipt Date: 20070515
  Transmission Date: 20071010
  Serious: Yes (Other)
  Sender: FDA-Public Use
  Company Number: E3810-00911-SPO-AU

PATIENT
  Sex: Male

DRUGS (4)
  1. PARIET (RABEPRAZOLE) (RABEPRAZOLE SODIUM) [Suspect]
     Dosage: ORAL; A FEW WEEKS AGO -
     Route: 048
  2. SIMVASTATIN [Concomitant]
  3. FUROSEMIDE [Concomitant]
  4. IRBISARTAN [Concomitant]

REACTIONS (3)
  - COGNITIVE DISORDER [None]
  - DEPRESSION [None]
  - SUICIDAL IDEATION [None]
